FAERS Safety Report 6656898-X (Version None)
Quarter: 2010Q1

REPORT INFORMATION
  Report Type: 
  Country: None (occurrence: None)
  Receive Date: 20100329
  Receipt Date: 20100329
  Transmission Date: 20100710
  Serious: No
  Sender: FDA-Public Use
  Company Number: None

PATIENT
  Age: 63 Year
  Sex: Male

DRUGS (1)
  1. LINEZOLID [Suspect]
     Indication: CELLULITIS
     Dosage: 600 MG BID PO
     Route: 048
     Dates: start: 20100219, end: 20100226

REACTIONS (1)
  - THROMBOCYTOPENIA [None]
